FAERS Safety Report 13697698 (Version 4)
Quarter: 2017Q4

REPORT INFORMATION
  Report Type: Spontaneous
  Country: CH (occurrence: CH)
  Receive Date: 20170628
  Receipt Date: 20171229
  Transmission Date: 20180320
  Serious: Yes (Death)
  Sender: FDA-Public Use
  Company Number: CH-JNJFOC-20170618411

PATIENT
  Sex: Male

DRUGS (11)
  1. ARICEPT [Concomitant]
     Active Substance: DONEPEZIL HYDROCHLORIDE
     Route: 048
     Dates: start: 20170601
  2. ASS CARDIO SPIRIG [Concomitant]
     Route: 048
     Dates: start: 20170601
  3. RISPERDAL [Suspect]
     Active Substance: RISPERIDONE
     Indication: DEMENTIA ALZHEIMER^S TYPE
     Route: 065
     Dates: start: 20170601, end: 2017
  4. PROCORALAN [Concomitant]
     Active Substance: IVABRADINE
     Route: 048
     Dates: start: 20170601
  5. ZESTRIL [Concomitant]
     Active Substance: LISINOPRIL
     Route: 048
     Dates: start: 20170601
  6. GLUCOPHAGE [Concomitant]
     Active Substance: METFORMIN HYDROCHLORIDE
     Route: 048
     Dates: start: 20170601
  7. CORVATON [Concomitant]
     Active Substance: MOLSIDOMINE
     Dosage: HALF TABLET
     Route: 048
     Dates: start: 20170601
  8. VITAMIN D3 [Concomitant]
     Active Substance: CHOLECALCIFEROL
     Route: 048
     Dates: start: 20170601
  9. TRAVATAN [Concomitant]
     Active Substance: TRAVOPROST
     Route: 047
     Dates: start: 20170601
  10. TRITTICO [Suspect]
     Active Substance: TRAZODONE HYDROCHLORIDE
     Indication: PRODUCT USED FOR UNKNOWN INDICATION
     Dosage: AT NIGHT
     Route: 065
     Dates: start: 20170601
  11. RISPERIDON SANDOZ [Suspect]
     Active Substance: RISPERIDONE
     Indication: PRODUCT USED FOR UNKNOWN INDICATION
     Dosage: IN MORNING AND MID DAY
     Route: 065
     Dates: start: 20170601

REACTIONS (7)
  - General physical health deterioration [Fatal]
  - Aphasia [Unknown]
  - Pain [Unknown]
  - Weight decreased [Unknown]
  - Gait disturbance [Unknown]
  - Aggression [Unknown]
  - Vertigo [Unknown]

NARRATIVE: CASE EVENT DATE: 2017
